FAERS Safety Report 26115757 (Version 1)
Quarter: 2025Q4

REPORT INFORMATION
  Report Type: Report from Study
  Country: CH (occurrence: CH)
  Receive Date: 20251203
  Receipt Date: 20251203
  Transmission Date: 20260117
  Serious: Yes (Hospitalization, Other)
  Sender: Medicap Laboratories
  Company Number: CH-Medicap-000104

PATIENT
  Age: 82 Year
  Sex: Male

DRUGS (9)
  1. BISOPROLOL [Concomitant]
     Active Substance: BISOPROLOL
     Indication: Product used for unknown indication
     Route: 065
  2. SACUBITRIL\VALSARTAN [Concomitant]
     Active Substance: SACUBITRIL\VALSARTAN
     Indication: Product used for unknown indication
     Route: 065
  3. TORSEMIDE [Concomitant]
     Active Substance: TORSEMIDE
     Indication: Product used for unknown indication
     Route: 065
  4. EMPAGLIFLOZIN [Concomitant]
     Active Substance: EMPAGLIFLOZIN
     Indication: Product used for unknown indication
     Route: 065
  5. TAMSULOSIN [Concomitant]
     Active Substance: TAMSULOSIN
     Indication: Product used for unknown indication
     Route: 065
  6. INSULIN NOS [Concomitant]
     Active Substance: INSULIN NOS
     Indication: Product used for unknown indication
     Route: 065
  7. Immunoglobulin [Concomitant]
     Indication: Necrotising myositis
     Dosage: (IV EVERY 2 WEEKS)
     Route: 042
  8. WARFARIN [Concomitant]
     Active Substance: WARFARIN
     Indication: Product used for unknown indication
     Route: 065
  9. VENLAFAXINE [Suspect]
     Active Substance: VENLAFAXINE HYDROCHLORIDE
     Indication: Depression
     Route: 065

REACTIONS (9)
  - Atrial fibrillation [Recovered/Resolved]
  - Heart failure with reduced ejection fraction [Recovered/Resolved]
  - Renal failure [Not Recovered/Not Resolved]
  - Pleural effusion [Recovered/Resolved]
  - Global longitudinal strain abnormal [Recovered/Resolved]
  - Renal impairment [Not Recovered/Not Resolved]
  - Oedema [Unknown]
  - Hypertension [Recovering/Resolving]
  - Electrocardiogram QT prolonged [Recovering/Resolving]
